FAERS Safety Report 9335707 (Version 1)
Quarter: 2013Q2

REPORT INFORMATION
  Report Type: Spontaneous
  Country: US (occurrence: US)
  Receive Date: 20130605
  Receipt Date: 20130605
  Transmission Date: 20140414
  Serious: No
  Sender: FDA-Public Use
  Company Number: US-ASTRAZENECA-2013SE37110

PATIENT
  Age: 88 Year
  Sex: Male
  Weight: 79.8 kg

DRUGS (3)
  1. NEXIUM [Suspect]
     Indication: GASTROOESOPHAGEAL REFLUX DISEASE
     Route: 048
  2. NEXIUM [Suspect]
     Indication: GASTROOESOPHAGEAL REFLUX DISEASE
     Route: 048
  3. AVODART [Concomitant]

REACTIONS (3)
  - Dysphagia [Unknown]
  - Foreign body [Unknown]
  - Intentional drug misuse [Unknown]
